FAERS Safety Report 26201281 (Version 1)
Quarter: 2025Q4

REPORT INFORMATION
  Report Type: Spontaneous
  Country: US (occurrence: US)
  Receive Date: 20251226
  Receipt Date: 20251226
  Transmission Date: 20260117
  Serious: Yes (Other)
  Sender: AMGEN
  Company Number: US-AMGEN-USASP2025254315

PATIENT
  Age: 51 Year
  Sex: Male

DRUGS (2)
  1. MVASI [Suspect]
     Active Substance: BEVACIZUMAB-AWWB
     Indication: Colon cancer
     Dosage: 560 MILLIGRAM (STRENGTH: 400 MG X1 VIA/ DOSE REQUESTED: 600 MG)L )
     Route: 042
     Dates: start: 20251104
  2. MVASI [Suspect]
     Active Substance: BEVACIZUMAB-AWWB
     Dosage: 560 MILLIGRAM, (STRENGTH: 100 MG X 2 VIALS/ DOSE REQUESTED: 600 MG)
     Route: 042

REACTIONS (1)
  - Oral surgery [Unknown]

NARRATIVE: CASE EVENT DATE: 20251215
